FAERS Safety Report 14587043 (Version 1)
Quarter: 2018Q1

REPORT INFORMATION
  Report Type: Spontaneous
  Country: KR (occurrence: KR)
  Receive Date: 20180301
  Receipt Date: 20180301
  Transmission Date: 20180509
  Serious: Yes (Death, Other)
  Sender: FDA-Public Use
  Company Number: KR-ACTELION-A-CH2018-168253

PATIENT
  Age: 26 Year
  Sex: Female

DRUGS (2)
  1. OPSUMIT [Suspect]
     Active Substance: MACITENTAN
     Indication: PULMONARY ARTERIAL HYPERTENSION
     Dosage: UNK
     Route: 048
     Dates: end: 201802
  2. UPTRAVI [Suspect]
     Active Substance: SELEXIPAG
     Indication: PULMONARY ARTERIAL HYPERTENSION
     Dosage: UNK
     Route: 048
     Dates: start: 201802, end: 201802

REACTIONS (6)
  - Cardiogenic shock [Fatal]
  - Haemorrhage [Fatal]
  - Blood pressure decreased [Fatal]
  - Sepsis [Fatal]
  - Hip arthroplasty [Unknown]
  - Inflammation [Fatal]
